FAERS Safety Report 17659947 (Version 2)
Quarter: 2020Q2

REPORT INFORMATION
  Report Type: Spontaneous
  Country: CY (occurrence: CY)
  Receive Date: 20200413
  Receipt Date: 20200513
  Transmission Date: 20200713
  Serious: Yes (Other)
  Sender: FDA-Public Use
  Company Number: NVSC2020CY096972

PATIENT
  Age: 45 Year
  Sex: Male

DRUGS (2)
  1. EXFORGE [Suspect]
     Active Substance: AMLODIPINE BESYLATE\VALSARTAN
     Indication: PRODUCT USED FOR UNKNOWN INDICATION
     Dosage: UNK (AMLODIPINE 5 MG,VALSARTAN 80 MG)
     Route: 048
  2. XANAX [Concomitant]
     Active Substance: ALPRAZOLAM
     Indication: PRODUCT USED FOR UNKNOWN INDICATION
     Dosage: 3 BLISTERS
     Route: 048

REACTIONS (5)
  - Gait disturbance [Recovered/Resolved]
  - Suicide attempt [Recovered/Resolved]
  - Amnesia [Recovered/Resolved]
  - Dizziness [Unknown]
  - Headache [Recovered/Resolved]
